FAERS Safety Report 24086876 (Version 4)
Quarter: 2024Q3

REPORT INFORMATION
  Report Type: Spontaneous
  Country: CA (occurrence: CA)
  Receive Date: 20240713
  Receipt Date: 20240911
  Transmission Date: 20241017
  Serious: Yes (Other)
  Sender: CELLTRION
  Company Number: CA-PFIZER INC-202400208193

PATIENT

DRUGS (16)
  1. INFLECTRA [Suspect]
     Active Substance: INFLIXIMAB-DYYB
     Indication: Psoriatic arthropathy
     Dosage: 600 MG, WEEKS 0, 2, 6 AND THEN EVERY 8 WEEKS
     Route: 042
     Dates: start: 20240506
  2. INFLECTRA [Suspect]
     Active Substance: INFLIXIMAB-DYYB
     Dosage: 600 MG, AFTER 8 WEEKS AND 3 DAYS (WEEKS 0, 2, 6 AND THEN EVERY 8 WEEKS)
     Route: 042
     Dates: start: 20240704
  3. INFLECTRA [Suspect]
     Active Substance: INFLIXIMAB-DYYB
     Dosage: 600 MG, AFTER 8 WEEKS (WEEKS 0, 2, 6 AND THEN EVERY 8 WEEKS)
     Route: 042
     Dates: start: 20240827
  4. ALENDRONATE [Concomitant]
     Active Substance: ALENDRONATE SODIUM
     Dosage: 70 MG
     Route: 048
  5. ALLOPURINOL [Concomitant]
     Active Substance: ALLOPURINOL
     Dosage: 200 MG
     Route: 048
  6. FOLIC ACID [Concomitant]
     Active Substance: FOLIC ACID
     Dosage: 5 MG
     Route: 048
  7. DULOXETINE [Concomitant]
     Active Substance: DULOXETINE
     Dosage: 60 MG
     Route: 048
  8. FUROSEMIDE [Concomitant]
     Active Substance: FUROSEMIDE
     Dosage: 80 MG
     Route: 048
  9. METHOTREXATE [Concomitant]
     Active Substance: METHOTREXATE
     Dosage: 10 MG
     Route: 048
  10. MAGNESIUM [Concomitant]
     Active Substance: MAGNESIUM
     Dosage: 835 MG
     Route: 048
  11. MCAL D1000 [Concomitant]
     Dosage: 500 MG
     Route: 048
  12. ROSUVASTATIN [Concomitant]
     Active Substance: ROSUVASTATIN\ROSUVASTATIN CALCIUM
     Dosage: 10 MG
  13. FERROUS SULFATE [Concomitant]
     Active Substance: FERROUS SULFATE
     Dosage: 300 MG
  14. SULFASALAZINE [Concomitant]
     Active Substance: SULFASALAZINE
     Dosage: 500 MG
     Route: 048
  15. TELMISARTAN [Concomitant]
     Active Substance: TELMISARTAN
     Dosage: 80 MG
     Route: 048
  16. XARELTO [Concomitant]
     Active Substance: RIVAROXABAN
     Dosage: 15 MG
     Route: 048

REACTIONS (7)
  - Limb injury [Not Recovered/Not Resolved]
  - Peripheral swelling [Not Recovered/Not Resolved]
  - Skin warm [Not Recovered/Not Resolved]
  - Erythema [Not Recovered/Not Resolved]
  - Condition aggravated [Not Recovered/Not Resolved]
  - Cellulitis [Recovered/Resolved]
  - Inappropriate schedule of product administration [Unknown]

NARRATIVE: CASE EVENT DATE: 20240101
